FAERS Safety Report 7862508-6 (Version None)
Quarter: 2011Q4

REPORT INFORMATION
  Report Type: 
  Country: None (occurrence: None)
  Receive Date: 20111027
  Receipt Date: 20101102
  Transmission Date: 20120403
  Serious: No
  Sender: FDA-Public Use
  Company Number: US-AMGEN-USASP2010003063

PATIENT
  Age: 63 Year
  Sex: Female

DRUGS (1)
  1. ENBREL [Suspect]
     Dates: start: 20100322

REACTIONS (3)
  - NAIL DISORDER [None]
  - DRUG INEFFECTIVE [None]
  - PSORIASIS [None]
